FAERS Safety Report 13361478 (Version 1)
Quarter: 2017Q1

REPORT INFORMATION
  Report Type: Report from Study
  Country: US (occurrence: US)
  Receive Date: 20170323
  Receipt Date: 20170323
  Transmission Date: 20170429
  Serious: Yes (Other)
  Sender: FDA-Public Use
  Company Number: US-AMGEN-USASL2017043819

PATIENT
  Age: 63 Year
  Sex: Female

DRUGS (1)
  1. REPATHA [Suspect]
     Active Substance: EVOLOCUMAB
     Indication: PRODUCT USED FOR UNKNOWN INDICATION
     Dosage: 140 MG, Q2WK
     Route: 065

REACTIONS (6)
  - Intestinal obstruction [Unknown]
  - Injection site scar [Not Recovered/Not Resolved]
  - Aortic stent insertion [Unknown]
  - Urinary tract infection [Unknown]
  - Cholecystectomy [Unknown]
  - Implantable cardiac monitor insertion [Unknown]
